FAERS Safety Report 8773674 (Version 1)
Quarter: 2012Q4

REPORT INFORMATION
  Report Type: 
  Country: FI (occurrence: FI)
  Receive Date: 20120907
  Receipt Date: 20120907
  Transmission Date: 20130627
  Serious: Yes (Other)
  Sender: FDA-Public Use
  Company Number: FI-B.I. PHARMACEUTICALS,INC./RIDGEFIELD-2012-BP-22065YA

PATIENT
  Age: 75 Year
  Sex: Male

DRUGS (5)
  1. TAMSULOSINA [Suspect]
     Indication: URINARY RETENTION
     Dosage: 0.4 mg
     Route: 048
     Dates: start: 20120801, end: 20120808
  2. AMINOPHILLINE [Suspect]
     Indication: URINARY RETENTION
     Dosage: 450 mg
     Route: 048
     Dates: start: 20120801, end: 20120808
  3. ATACAND [Concomitant]
     Indication: HYPERTENSION
     Dosage: 16 mg
     Route: 048
  4. MAREVAN [Concomitant]
     Indication: ANTICOAGULANT THERAPY
     Route: 048
  5. EMCONCOR [Concomitant]
     Indication: HYPERTENSION
     Route: 048

REACTIONS (1)
  - Oropharyngeal swelling [Recovered/Resolved]
